FAERS Safety Report 4407033-X (Version None)
Quarter: 2004Q3

REPORT INFORMATION
  Report Type: 
  Country: None (occurrence: None)
  Receive Date: 20040724
  Receipt Date: 20040714
  Transmission Date: 20050211
  Serious: Yes (Death)
  Sender: FDA-Public Use
  Company Number: JP-MERCK-0407USA01311

PATIENT
  Age: 70 Year
  Sex: Female

DRUGS (2)
  1. CEFAZOLIN [Concomitant]
     Indication: INFECTION
     Route: 065
     Dates: end: 20040101
  2. PRIMAXIN [Suspect]
     Indication: INFECTION
     Route: 042
     Dates: start: 20040101, end: 20040101

REACTIONS (2)
  - AGRANULOCYTOSIS [None]
  - PNEUMONIA [None]
